FAERS Safety Report 9808418 (Version 1)
Quarter: 2014Q1

REPORT INFORMATION
  Report Type: Spontaneous
  Country: ES (occurrence: ES)
  Receive Date: 20140110
  Receipt Date: 20140110
  Transmission Date: 20141002
  Serious: Yes (Other)
  Sender: FDA-Public Use
  Company Number: ES-ABBVIE-14P-144-1188185-00

PATIENT
  Age: 72 Year
  Sex: Male

DRUGS (5)
  1. VALPROATE SODIUM [Suspect]
     Indication: STATUS EPILEPTICUS
  2. PHENYTOIN [Suspect]
     Indication: STATUS EPILEPTICUS
  3. PHENYTOIN [Suspect]
  4. PROPOFOL [Concomitant]
     Indication: PRODUCT USED FOR UNKNOWN INDICATION
  5. MORPHINE [Concomitant]
     Indication: PRODUCT USED FOR UNKNOWN INDICATION

REACTIONS (4)
  - Ophthalmoplegia [Recovered/Resolved]
  - Toxicity to various agents [Unknown]
  - Areflexia [Unknown]
  - Hyperammonaemia [Unknown]
